FAERS Safety Report 21872807 (Version 1)
Quarter: 2023Q1

REPORT INFORMATION
  Report Type: Report from Study
  Country: PR (occurrence: PR)
  Receive Date: 20230117
  Receipt Date: 20230117
  Transmission Date: 20230417
  Serious: No
  Sender: FDA-Public Use
  Company Number: PR-ABBVIE-4239178

PATIENT
  Sex: Female
  Weight: 198.21 kg

DRUGS (9)
  1. HUMIRA [Suspect]
     Active Substance: ADALIMUMAB
     Indication: Psoriatic arthropathy
     Route: 058
     Dates: start: 20211124
  2. ZOLOFT [Concomitant]
     Active Substance: SERTRALINE HYDROCHLORIDE
     Indication: Depression
     Dosage: FORM STRENGTH: 100 MILLIGRAM
  3. ELASOMERAN [Concomitant]
     Active Substance: ELASOMERAN
     Indication: COVID-19 immunisation
     Dosage: 4 DOSES OF COVID VACCINE RECEIVED
     Route: 030
  4. XANAX [Concomitant]
     Active Substance: ALPRAZOLAM
     Indication: Neuropathy peripheral
  5. AD26.COV2.S [Concomitant]
     Active Substance: AD26.COV2.S
     Indication: COVID-19 immunisation
     Dosage: 4 DOSES OF COVID VACCINE RECEIVED
     Route: 030
  6. Hydroxyzine (Vistaryl ) [Concomitant]
     Indication: Restlessness
  7. SIMVASTATIN [Concomitant]
     Active Substance: SIMVASTATIN
     Indication: Blood cholesterol
  8. Buspirone (Bupironia) [Concomitant]
     Indication: Anxiety
  9. Temazepam (Restoril) [Concomitant]
     Indication: Sleep disorder therapy

REACTIONS (3)
  - Mycoplasma infection [Recovering/Resolving]
  - COVID-19 [Recovering/Resolving]
  - Communication disorder [Recovering/Resolving]

NARRATIVE: CASE EVENT DATE: 20221101
